FAERS Safety Report 5299018-9 (Version None)
Quarter: 2007Q2

REPORT INFORMATION
  Report Type: 
  Country: None (occurrence: None)
  Receive Date: 20070412
  Receipt Date: 20070412
  Transmission Date: 20071010
  Serious: Yes (Death)
  Sender: FDA-Public Use
  Company Number: None

PATIENT
  Weight: 69.8539 kg

DRUGS (1)
  1. ZELNORM [Suspect]
     Indication: CONSTIPATION
     Dosage: 1 TABLET 2 TIMES DAILY
     Dates: start: 20061229, end: 20070127

REACTIONS (2)
  - ANGIOPATHY [None]
  - CEREBROVASCULAR ACCIDENT [None]
